FAERS Safety Report 4682151-X (Version None)
Quarter: 2005Q2

REPORT INFORMATION
  Report Type: 
  Country: None (occurrence: None)
  Receive Date: 20050526
  Receipt Date: 20050413
  Transmission Date: 20051028
  Serious: Yes (Hospitalization)
  Sender: FDA-Public Use
  Company Number: US-JNJFOC-20050403590

PATIENT
  Sex: Female

DRUGS (1)
  1. RISPERDAL [Suspect]
     Dosage: 25 MG, 1 IN 2 WEEK, INTRA-MUSCULAR
     Route: 030

REACTIONS (1)
  - PSYCHOTIC DISORDER [None]
